FAERS Safety Report 24083054 (Version 1)
Quarter: 2024Q3

REPORT INFORMATION
  Report Type: Spontaneous
  Country: DE (occurrence: DE)
  Receive Date: 20240712
  Receipt Date: 20240712
  Transmission Date: 20241017
  Serious: Yes (Disabling, Other)
  Sender: TORRENT
  Company Number: None

PATIENT
  Sex: Female
  Weight: 3 kg

DRUGS (4)
  1. LEVETIRACETAM [Suspect]
     Active Substance: LEVETIRACETAM
     Indication: Product used for unknown indication
     Dosage: 3000 [MG/D ]/ INITIALLY 2500 MG/D (2X1250), FROM GW 27 3000 MG/D (2X1500)
     Route: 064
  2. CALCITRIOL [Concomitant]
     Active Substance: CALCITRIOL
     Indication: Product used for unknown indication
     Dosage: 0.25 [MG/D] FROM 18/05/2023 TO 23/02/2024 FOR 281 DAYS
     Route: 064
  3. CALCIUM [Concomitant]
     Active Substance: CALCIUM
     Indication: Product used for unknown indication
     Dosage: 1800 [MG/D] 3 SEPARATED DOSES FROM 18/05/2023 TO 23/02/2024 FOR 281 DAYS
     Route: 064
  4. LEVOTHYROXINE SODIUM [Concomitant]
     Active Substance: LEVOTHYROXINE SODIUM
     Indication: Product used for unknown indication
     Dosage: 125 [G/D ]/ INITIALLY 100 G/D, INCREASED TO 125 G/D IN THE COURSE OF PREGNANCY
     Route: 064

REACTIONS (2)
  - Foetal exposure during pregnancy [Unknown]
  - Feeling jittery [Recovering/Resolving]

NARRATIVE: CASE EVENT DATE: 20240201
